FAERS Safety Report 5712133-8 (Version None)
Quarter: 2008Q2

REPORT INFORMATION
  Report Type: 
  Country: None (occurrence: None)
  Receive Date: 20080417
  Receipt Date: 20080407
  Transmission Date: 20081010
  Serious: Yes (Other)
  Sender: FDA-Public Use
  Company Number: CERZ-1000175

PATIENT
  Age: 57 Year
  Sex: Female

DRUGS (3)
  1. CEREZYME [Suspect]
     Indication: GAUCHER'S DISEASE
     Dosage: INTRAVENOUS
     Route: 042
     Dates: start: 19970630
  2. UNSPECIFIED DIABETIC MEDICATION [Concomitant]
  3. UNSPECIFIED ANTIHYPERTENSIVE MEDICATION [Concomitant]

REACTIONS (4)
  - CHILLS [None]
  - KIDNEY INFECTION [None]
  - PYREXIA [None]
  - TREMOR [None]
